FAERS Safety Report 20028516 (Version 1)
Quarter: 2021Q4

REPORT INFORMATION
  Report Type: Report from Study
  Country: FR (occurrence: FR)
  Receive Date: 20211103
  Receipt Date: 20211103
  Transmission Date: 20220304
  Serious: Yes (Death, Hospitalization, Other)
  Sender: FDA-Public Use
  Company Number: FR-BRISTOL-MYERS SQUIBB COMPANY-BMS-2021-112169

PATIENT
  Age: 73 Year
  Sex: Male

DRUGS (1)
  1. NIVOLUMAB [Suspect]
     Active Substance: NIVOLUMAB
     Indication: Squamous cell carcinoma of head and neck
     Dosage: 3 MILLIGRAM/KILOGRAM
     Route: 042
     Dates: start: 20201229, end: 20201229

REACTIONS (2)
  - Malignant neoplasm progression [Fatal]
  - Hyperthermia [Unknown]

NARRATIVE: CASE EVENT DATE: 20210112
